FAERS Safety Report 4717224-6 (Version None)
Quarter: 2005Q3

REPORT INFORMATION
  Report Type: 
  Country: None (occurrence: None)
  Receive Date: 20050715
  Receipt Date: 20050707
  Transmission Date: 20060218
  Serious: Yes (Death, Disabling, Other)
  Sender: FDA-Public Use
  Company Number: 2005092591

PATIENT
  Age: 79 Year
  Sex: Female

DRUGS (2)
  1. XALATAN [Suspect]
     Indication: GLAUCOMA
     Dosage: OPHTHALMIC
     Route: 047
     Dates: start: 20001023, end: 20030101
  2. ALL OTHER THERAPEUTIC PRODUCTS [Concomitant]

REACTIONS (11)
  - BLINDNESS UNILATERAL [None]
  - DRUG INEFFECTIVE [None]
  - ERYSIPELAS [None]
  - GLAUCOMA [None]
  - HAEMODIALYSIS [None]
  - INTRAOCULAR PRESSURE INCREASED [None]
  - MALNUTRITION [None]
  - MULTI-ORGAN FAILURE [None]
  - PERITONEAL DIALYSIS [None]
  - RENAL DISORDER [None]
  - RENAL FAILURE [None]
